FAERS Safety Report 21814372 (Version 2)
Quarter: 2023Q1

REPORT INFORMATION
  Report Type: Spontaneous
  Country: US (occurrence: US)
  Receive Date: 20230104
  Receipt Date: 20230131
  Transmission Date: 20230418
  Serious: No
  Sender: FDA-Public Use
  Company Number: US-ALKERMES INC.-ALK-2022-006067

PATIENT
  Sex: Female
  Weight: 45.805 kg

DRUGS (1)
  1. ARISTADA [Suspect]
     Active Substance: ARIPIPRAZOLE LAUROXIL
     Indication: Schizophrenia
     Dosage: 882 MILLIGRAM, QMO
     Route: 030

REACTIONS (6)
  - Body height decreased [Unknown]
  - Choking [Unknown]
  - Somnolence [Unknown]
  - Insomnia [Unknown]
  - Dry mouth [Unknown]
  - Dysphagia [Unknown]
